FAERS Safety Report 7568555-6 (Version None)
Quarter: 2011Q2

REPORT INFORMATION
  Report Type: 
  Country: None (occurrence: None)
  Receive Date: 20110623
  Receipt Date: 20110617
  Transmission Date: 20111010
  Serious: Yes (Death, Other)
  Sender: FDA-Public Use
  Company Number: FR-PFIZER INC-2011133166

PATIENT
  Age: 65 Year
  Sex: Male

DRUGS (7)
  1. GLUCOPHAGE [Concomitant]
     Dosage: 3 G, 1X/DAY
     Dates: end: 20110501
  2. IFOSFAMIDE [Suspect]
     Dosage: 5500 MG, CYCLIC
     Route: 042
     Dates: start: 20110509, end: 20110511
  3. GLYBURIDE [Concomitant]
     Dosage: 10 MG, 1X/DAY
     Dates: end: 20110501
  4. ATACAND [Concomitant]
     Dosage: 16 MG, 1X/DAY
     Dates: end: 20110513
  5. MESNA [Suspect]
     Dosage: UNK
     Route: 042
     Dates: start: 20110509, end: 20110511
  6. DOXORUBICIN HCL [Suspect]
     Dosage: 115 MG, CYCLIC
     Route: 042
     Dates: start: 20110509, end: 20110509
  7. INDAPAMIDE [Concomitant]
     Dosage: 1.5 MG, 1X/DAY
     Route: 048
     Dates: end: 20110512

REACTIONS (4)
  - BONE MARROW FAILURE [None]
  - DEATH [None]
  - RENAL FAILURE [None]
  - ENCEPHALOPATHY [None]
